FAERS Safety Report 9857458 (Version 4)
Quarter: 2015Q2

REPORT INFORMATION
  Report Type: Report from Study
  Country: FR (occurrence: FR)
  Receive Date: 20140131
  Receipt Date: 20150423
  Transmission Date: 20150821
  Serious: Yes (Hospitalization, Other)
  Sender: FDA-Public Use
  Company Number: FR-ROCHE-1164735

PATIENT
  Age: 74 Year
  Sex: Female

DRUGS (17)
  1. RITUXIMAB [Suspect]
     Active Substance: RITUXIMAB
     Dosage: DAY 15
     Route: 041
     Dates: start: 20081003
  2. RITUXIMAB [Suspect]
     Active Substance: RITUXIMAB
     Dosage: SINGLE INFUSION
     Route: 041
     Dates: start: 20090416
  3. RITUXIMAB [Suspect]
     Active Substance: RITUXIMAB
     Dosage: SINGLE INFUSION
     Route: 041
     Dates: start: 20110831
  4. CORTANCYL [Concomitant]
     Active Substance: PREDNISONE
     Route: 065
  5. RITUXIMAB [Suspect]
     Active Substance: RITUXIMAB
     Dosage: SINGLE INFUSION
     Route: 041
     Dates: start: 20080321
  6. RITUXIMAB [Suspect]
     Active Substance: RITUXIMAB
     Dosage: DAY 1
     Route: 041
     Dates: start: 20091103
  7. RITUXIMAB [Suspect]
     Active Substance: RITUXIMAB
     Dosage: DAY 15
     Route: 041
     Dates: start: 20091117
  8. RITUXIMAB [Suspect]
     Active Substance: RITUXIMAB
     Dosage: DAY 15
     Route: 041
     Dates: start: 201102
  9. CORTANCYL [Concomitant]
     Active Substance: PREDNISONE
     Route: 065
  10. CORTANCYL [Concomitant]
     Active Substance: PREDNISONE
     Route: 065
  11. RITUXIMAB [Suspect]
     Active Substance: RITUXIMAB
     Indication: RHEUMATOID ARTHRITIS
     Dosage: DAY 1
     Route: 041
     Dates: start: 20070803
  12. RITUXIMAB [Suspect]
     Active Substance: RITUXIMAB
     Dosage: DAY 15
     Route: 041
     Dates: start: 20070817
  13. RITUXIMAB [Suspect]
     Active Substance: RITUXIMAB
     Dosage: DAY 1
     Route: 041
     Dates: start: 20080919
  14. RITUXIMAB [Suspect]
     Active Substance: RITUXIMAB
     Dosage: DAY 15
     Route: 041
     Dates: start: 20100716
  15. RITUXIMAB [Suspect]
     Active Substance: RITUXIMAB
     Dosage: DAY 1
     Route: 041
     Dates: start: 20110119
  16. LEFLUNOMIDE. [Concomitant]
     Active Substance: LEFLUNOMIDE
     Route: 065
     Dates: start: 20110714
  17. RITUXIMAB [Suspect]
     Active Substance: RITUXIMAB
     Dosage: DAY 1
     Route: 041
     Dates: start: 20100702

REACTIONS (25)
  - Malaise [Unknown]
  - Hot flush [Unknown]
  - Rhinitis [Recovered/Resolved]
  - Bronchitis [Recovered/Resolved]
  - Pyrexia [Recovered/Resolved]
  - Adverse drug reaction [Unknown]
  - Helicobacter infection [Unknown]
  - Paraesthesia [Unknown]
  - Bronchitis [Recovered/Resolved]
  - Melanocytic naevus [Unknown]
  - Feeling hot [Unknown]
  - Pharyngitis [Recovered/Resolved]
  - Haematuria [Unknown]
  - Arrhythmia [Unknown]
  - Fall [Recovered/Resolved]
  - Lung infection [Unknown]
  - Fibromyalgia [Recovered/Resolved]
  - Bronchitis [Unknown]
  - Chest pain [Recovered/Resolved]
  - Gastroenteritis [Recovered/Resolved]
  - Actinic keratosis [Unknown]
  - Lung infection [Recovering/Resolving]
  - Dizziness [Not Recovered/Not Resolved]
  - Atrial fibrillation [Unknown]
  - Haematoma [Recovered/Resolved]

NARRATIVE: CASE EVENT DATE: 200801
